FAERS Safety Report 14860695 (Version 1)
Quarter: 2018Q2

REPORT INFORMATION
  Report Type: Spontaneous
  Country: US (occurrence: US)
  Receive Date: 20180508
  Receipt Date: 20180508
  Transmission Date: 20180711
  Serious: Yes (Hospitalization)
  Sender: FDA-Public Use
  Company Number: US-MYLANLABS-2018M1028749

PATIENT
  Age: 36 Year
  Sex: Female

DRUGS (5)
  1. OMNIPAQUE [Suspect]
     Active Substance: IOHEXOL
     Indication: PRODUCT USED FOR UNKNOWN INDICATION
     Dosage: 180 MG/ML
     Route: 058
  2. NORMAL SALINE [Concomitant]
     Active Substance: SODIUM CHLORIDE
     Indication: PRODUCT USED FOR UNKNOWN INDICATION
     Route: 008
  3. TOPIRAMATE. [Concomitant]
     Active Substance: TOPIRAMATE
     Indication: RADICULAR PAIN
     Route: 065
  4. MELOXICAM. [Concomitant]
     Active Substance: MELOXICAM
     Indication: RADICULAR PAIN
     Route: 065
  5. TRIAMCINOLONE [Suspect]
     Active Substance: TRIAMCINOLONE
     Indication: RADICULAR PAIN
     Dosage: 40 MG, UNK
     Route: 008

REACTIONS (3)
  - Anaphylactoid reaction [Recovering/Resolving]
  - Lipoma [Recovering/Resolving]
  - Infusion site extravasation [Recovering/Resolving]
